FAERS Safety Report 19660020 (Version 4)
Quarter: 2022Q2

REPORT INFORMATION
  Report Type: Report from Study
  Country: FR (occurrence: FR)
  Receive Date: 20210805
  Receipt Date: 20220526
  Transmission Date: 20220720
  Serious: Yes (Life-Threatening, Hospitalization)
  Sender: FDA-Public Use
  Company Number: FR-JNJFOC-20210753483

PATIENT
  Age: 38 Year
  Sex: Female

DRUGS (7)
  1. SPRAVATO [Suspect]
     Active Substance: ESKETAMINE
     Indication: Depression
     Dosage: 56 MG, 2 TOTAL DOSES
     Dates: start: 20210304, end: 20210309
  2. SPRAVATO [Suspect]
     Active Substance: ESKETAMINE
     Dates: start: 20210311, end: 20210311
  3. FLUOXETINE [Concomitant]
     Active Substance: FLUOXETINE HYDROCHLORIDE
  4. RIVAROXABAN [Concomitant]
     Active Substance: RIVAROXABAN
     Indication: Pulmonary embolism
  5. VENLAFAXINE [Concomitant]
     Active Substance: VENLAFAXINE HYDROCHLORIDE
     Indication: Major depression
     Dosage: 150MG/DAY
     Route: 048
     Dates: start: 20210122
  6. MIRTAZAPINE [Concomitant]
     Active Substance: MIRTAZAPINE
     Indication: Major depression
     Dosage: 30MG/DAY
     Route: 048
     Dates: start: 202009
  7. CYAMEMAZINE [Concomitant]
     Active Substance: CYAMEMAZINE
     Indication: Anxiety
     Dosage: 40MG/DAY
     Route: 048
     Dates: start: 20210120

REACTIONS (2)
  - Suicide attempt [Recovered/Resolved]
  - Drug ineffective [Not Recovered/Not Resolved]

NARRATIVE: CASE EVENT DATE: 20210311
